FAERS Safety Report 5475739-X (Version None)
Quarter: 2007Q4

REPORT INFORMATION
  Report Type: 
  Country: None (occurrence: None)
  Receive Date: 20071003
  Receipt Date: 20070925
  Transmission Date: 20080405
  Serious: Yes (Other)
  Sender: FDA-Public Use
  Company Number: FRWYE328618SEP07

PATIENT
  Age: 58 Year
  Sex: Male

DRUGS (4)
  1. TYGACIL [Suspect]
     Indication: PNEUMONIA
     Route: 042
     Dates: start: 20070701, end: 20070901
  2. TYGACIL [Suspect]
     Indication: PNEUMONIA STAPHYLOCOCCAL
  3. TYGACIL [Suspect]
     Indication: PNEUMONIA STREPTOCOCCAL
  4. AZATHIOPRINE SODIUM [Concomitant]
     Indication: PULMONARY FIBROSIS
     Dosage: UNKNOWN

REACTIONS (2)
  - CONFUSIONAL STATE [None]
  - INTENTIONAL DRUG MISUSE [None]
